FAERS Safety Report 4796333-X (Version None)
Quarter: 2005Q4

REPORT INFORMATION
  Report Type: 
  Country: None (occurrence: None)
  Receive Date: 20051013
  Receipt Date: 20050929
  Transmission Date: 20060501
  Serious: Yes (Death)
  Sender: FDA-Public Use
  Company Number: US-GLAXOSMITHKLINE-B0395649A

PATIENT

DRUGS (2)
  1. TOPOTECAN [Suspect]
     Dosage: .4MGM2 PER DAY
     Route: 048
  2. DOXIL [Suspect]
     Dosage: 30MGM2 PER DAY
     Route: 042

REACTIONS (4)
  - ESCHERICHIA SEPSIS [None]
  - FEBRILE NEUTROPENIA [None]
  - LEUKOPENIA [None]
  - THROMBOCYTOPENIA [None]
